FAERS Safety Report 10433642 (Version 1)
Quarter: 2014Q3

REPORT INFORMATION
  Report Type: Spontaneous
  Country: AU (occurrence: CA)
  Receive Date: 20140905
  Receipt Date: 20140905
  Transmission Date: 20150326
  Serious: Yes (Other)
  Sender: FDA-Public Use
  Company Number: PHHY2014CA111959

PATIENT
  Age: 16 Day
  Sex: Male

DRUGS (2)
  1. TOBRAMYCIN SANDOZ [Suspect]
     Active Substance: TOBRAMYCIN
     Indication: URINARY TRACT INFECTION NEONATAL
     Dosage: 10 MG/ML, Q9H
  2. TOBRAMYCIN SANDOZ [Suspect]
     Active Substance: TOBRAMYCIN
     Indication: URINARY TRACT INFECTION NEONATAL
     Dosage: 40 MG/ML, Q8H

REACTIONS (3)
  - Drug administration error [Unknown]
  - Inappropriate schedule of drug administration [None]
  - Incorrect dosage administered [Unknown]
